FAERS Safety Report 5383439-X (Version None)
Quarter: 2007Q3

REPORT INFORMATION
  Report Type: 
  Country: None (occurrence: None)
  Receive Date: 20070706
  Receipt Date: 20070625
  Transmission Date: 20080115
  Serious: Yes (Hospitalization)
  Sender: FDA-Public Use
  Company Number: RENA-12175

PATIENT
  Age: 47 Year
  Sex: Male
  Weight: 81.5 kg

DRUGS (2)
  1. RENAGEL [Suspect]
     Indication: PERITONEAL DIALYSIS
     Dosage: 0.8 G TID PO
     Route: 048
     Dates: start: 20070109, end: 20070202
  2. RAMIPRIL [Concomitant]

REACTIONS (2)
  - DRUG HYPERSENSITIVITY [None]
  - EOSINOPHILIA [None]
